FAERS Safety Report 7402585-X (Version None)
Quarter: 2011Q1

REPORT INFORMATION
  Report Type: 
  Country: None (occurrence: None)
  Receive Date: 20110330
  Receipt Date: 20110316
  Transmission Date: 20110831
  Serious: Yes (Hospitalization, Other)
  Sender: FDA-Public Use
  Company Number: 019115

PATIENT
  Sex: Female
  Weight: 80.1 kg

DRUGS (8)
  1. CERTOLIZUMAB PEGOL (CERTOLIZUMAB PEGOL) [Suspect]
     Indication: RHEUMATOID ARTHRITIS
     Dosage: (400 MG 1X/2 WEEKS, STUDY: CDP870-27 SUBCUTANEOUS), (400 MG 1X/'2 WEEK SUBCUTANEOUS), (SUBCUTANEOUS)
     Route: 058
     Dates: start: 20060822, end: 20071224
  2. CERTOLIZUMAB PEGOL (CERTOLIZUMAB PEGOL) [Suspect]
     Indication: RHEUMATOID ARTHRITIS
     Dosage: (400 MG 1X/2 WEEKS, STUDY: CDP870-27 SUBCUTANEOUS), (400 MG 1X/'2 WEEK SUBCUTANEOUS), (SUBCUTANEOUS)
     Route: 058
     Dates: start: 20080108
  3. CERTOLIZUMAB PEGOL (CERTOLIZUMAB PEGOL) [Suspect]
     Indication: RHEUMATOID ARTHRITIS
     Dosage: (400 MG 1X/2 WEEKS, STUDY: CDP870-27 SUBCUTANEOUS), (400 MG 1X/'2 WEEK SUBCUTANEOUS), (SUBCUTANEOUS)
     Route: 058
     Dates: start: 20050823, end: 20060808
  4. PREDNISONE [Concomitant]
  5. IPRATROPIUM BROMIDE [Concomitant]
  6. FOLIC ACID [Concomitant]
  7. PARACETAMOL [Concomitant]
  8. METHOTREXATE [Concomitant]

REACTIONS (15)
  - HEADACHE [None]
  - EOSINOPHIL PERCENTAGE DECREASED [None]
  - ESCHERICHIA BACTERAEMIA [None]
  - BACTERIAL INFECTION [None]
  - ESCHERICHIA INFECTION [None]
  - INFLUENZA [None]
  - DEEP VEIN THROMBOSIS [None]
  - LYMPHOCYTE PERCENTAGE DECREASED [None]
  - URTICARIA [None]
  - CULTURE URINE POSITIVE [None]
  - MONOCYTE PERCENTAGE DECREASED [None]
  - PYELONEPHRITIS ACUTE [None]
  - MYALGIA [None]
  - PATHOGEN RESISTANCE [None]
  - BLOOD GLUCOSE INCREASED [None]
